FAERS Safety Report 10694943 (Version 1)
Quarter: 2015Q1

REPORT INFORMATION
  Report Type: Spontaneous
  Country: GB (occurrence: GB)
  Receive Date: 20150107
  Receipt Date: 20150107
  Transmission Date: 20150721
  Serious: Yes (Other)
  Sender: FDA-Public Use
  Company Number: GB-TEVA-532362ISR

PATIENT
  Age: 57 Year
  Sex: Female

DRUGS (1)
  1. AMITRIPTYLINE [Suspect]
     Active Substance: AMITRIPTYLINE
     Indication: MYALGIA
     Dosage: 10 MILLIGRAM DAILY; 10 MG, QHS
     Route: 048
     Dates: start: 2009, end: 20141204

REACTIONS (12)
  - Hypoaesthesia [Unknown]
  - Withdrawal syndrome [Unknown]
  - Headache [Unknown]
  - Malaise [Unknown]
  - Chest discomfort [Unknown]
  - Therapeutic response unexpected [Unknown]
  - Gait disturbance [Unknown]
  - Insomnia [Unknown]
  - Palpitations [Unknown]
  - Nausea [Unknown]
  - Off label use [Unknown]
  - Dysphagia [Recovering/Resolving]

NARRATIVE: CASE EVENT DATE: 2009
